FAERS Safety Report 6161857-X (Version None)
Quarter: 2009Q2

REPORT INFORMATION
  Report Type: 
  Country: None (occurrence: None)
  Receive Date: 20090421
  Receipt Date: 20090414
  Transmission Date: 20091009
  Serious: Yes (Other)
  Sender: FDA-Public Use
  Company Number: A0778560A

PATIENT
  Age: 54 Year
  Sex: Male

DRUGS (10)
  1. CEFTIN [Suspect]
     Dosage: 250MG TWICE PER DAY
     Route: 065
     Dates: start: 20090409, end: 20090413
  2. ASPIRIN [Concomitant]
  3. SYNTHROID [Concomitant]
  4. ATENOLOL [Concomitant]
  5. NORVASC [Concomitant]
  6. CITALOPRAM HYDROBROMIDE [Concomitant]
  7. RAMIPRIL [Concomitant]
  8. LIPITOR [Concomitant]
  9. MARIJUANA [Concomitant]
     Indication: PAIN
  10. UNKNOWN MEDICATION [Concomitant]

REACTIONS (5)
  - DIARRHOEA [None]
  - DYSPNOEA [None]
  - EYE IRRITATION [None]
  - EYE PAIN [None]
  - GLAUCOMA [None]
